FAERS Safety Report 21443500 (Version 1)
Quarter: 2022Q4

REPORT INFORMATION
  Report Type: Spontaneous
  Country: None (occurrence: US)
  Receive Date: 20221012
  Receipt Date: 20221012
  Transmission Date: 20230113
  Serious: Yes (Other)
  Sender: FDA-Public Use
  Company Number: US-Hisun Pharmaceuticals-2133724

PATIENT
  Sex: Female

DRUGS (3)
  1. DAUNORUBICIN HYDROCHLORIDE [Suspect]
     Active Substance: DAUNORUBICIN HYDROCHLORIDE
     Indication: Acute myeloid leukaemia
  2. CYTARABINE [Suspect]
     Active Substance: CYTARABINE
  3. MIDOSTAURIN [Suspect]
     Active Substance: MIDOSTAURIN

REACTIONS (1)
  - Acute myeloid leukaemia recurrent [Unknown]
